FAERS Safety Report 7956287-1 (Version None)
Quarter: 2011Q4

REPORT INFORMATION
  Report Type: 
  Country: None (occurrence: None)
  Receive Date: 20111125
  Receipt Date: 20111118
  Transmission Date: 20120403
  Serious: Yes (Hospitalization)
  Sender: FDA-Public Use
  Company Number: 2011029610

PATIENT
  Age: 48 Year
  Sex: Male
  Weight: 89.8122 kg

DRUGS (12)
  1. LISINOPRIL [Concomitant]
  2. AMOXICILLIN [Concomitant]
  3. IBUPROFEN [Concomitant]
  4. LEVAQUIN [Concomitant]
  5. ALBUTEROL [Concomitant]
  6. VITAMIN B12 [Concomitant]
  7. HIZENTRA [Suspect]
  8. AMBIEN [Concomitant]
  9. HYDROCHLOROTHIAZIDE [Concomitant]
  10. BIAXIN [Concomitant]
  11. HIZENTRA [Suspect]
     Indication: IMMUNODEFICIENCY
     Dosage: SEE IMAGE
     Route: 058
  12. ACYCLOVIR [Concomitant]

REACTIONS (7)
  - FATIGUE [None]
  - DISTURBANCE IN ATTENTION [None]
  - VISION BLURRED [None]
  - NERVOUS SYSTEM DISORDER [None]
  - SOMNOLENCE [None]
  - WEIGHT DECREASED [None]
  - MUSCULAR WEAKNESS [None]
